FAERS Safety Report 5063689-2 (Version None)
Quarter: 2006Q3

REPORT INFORMATION
  Report Type: 
  Country: None (occurrence: None)
  Receive Date: 20060703
  Receipt Date: 20060411
  Transmission Date: 20061208
  Serious: No
  Sender: FDA-Public Use
  Company Number: ENTC2006-0109

PATIENT
  Age: 71 Year
  Sex: Male

DRUGS (2)
  1. STALEVO 50 [Suspect]
     Indication: PARKINSON'S DISEASE
     Dosage: 200 MG, 4 IN 1 D, ORAL; 400 MG, 4 IN 1 D, ORAL
     Route: 048
     Dates: start: 20060327, end: 20060402
  2. STALEVO 50 [Suspect]
     Indication: PARKINSON'S DISEASE
     Dosage: 200 MG, 4 IN 1 D, ORAL; 400 MG, 4 IN 1 D, ORAL
     Route: 048
     Dates: start: 20060403

REACTIONS (2)
  - DRUG INEFFECTIVE [None]
  - STOMACH DISCOMFORT [None]
